FAERS Safety Report 15030236 (Version 3)
Quarter: 2018Q3

REPORT INFORMATION
  Report Type: Report from Study
  Country: RU (occurrence: RU)
  Receive Date: 20180619
  Receipt Date: 20180906
  Transmission Date: 20181010
  Serious: Yes (Death, Life-Threatening)
  Sender: FDA-Public Use
  Company Number: RU-PFIZER INC-2018245211

PATIENT
  Age: 69 Year
  Sex: Male
  Weight: 54 kg

DRUGS (10)
  1. SALINE [Concomitant]
     Active Substance: SODIUM CHLORIDE
     Dosage: UNK
     Dates: start: 20180214
  2. IRINOTECAN HCL [Suspect]
     Active Substance: IRINOTECAN HYDROCHLORIDE
     Dosage: 557 MG, TOTAL DAILY DOSE, CYCLE 5
     Route: 041
     Dates: start: 20180510
  3. DIPHENHYDRAMINE. [Concomitant]
     Active Substance: DIPHENHYDRAMINE
     Dosage: UNK
     Dates: start: 20180214
  4. DEXAMETHASONE. [Concomitant]
     Active Substance: DEXAMETHASONE
     Dosage: UNK
     Dates: start: 20180517, end: 20180519
  5. ACETAMINOPHEN. [Concomitant]
     Active Substance: ACETAMINOPHEN
     Dosage: UNK
     Dates: start: 20180214
  6. DINUTUXIMAB [Suspect]
     Active Substance: DINUTUXIMAB
     Indication: SMALL CELL LUNG CANCER
     Dosage: UNK, CYCLIC
     Route: 042
     Dates: start: 20180214
  7. IRINOTECAN HCL [Suspect]
     Active Substance: IRINOTECAN HYDROCHLORIDE
     Indication: SMALL CELL LUNG CANCER
     Dosage: UNK, CYCLIC
     Route: 042
     Dates: start: 20180214
  8. DINUTUXIMAB [Suspect]
     Active Substance: DINUTUXIMAB
     Dosage: 27.83 MG, TOTAL DAILY DOSE, CYCLE 5
     Route: 041
     Dates: start: 20180510
  9. LOSARTAN. [Concomitant]
     Active Substance: LOSARTAN
     Dosage: UNK
     Dates: start: 20170711
  10. SALINE [Concomitant]
     Active Substance: SODIUM CHLORIDE
     Dosage: UNK
     Dates: start: 20180214

REACTIONS (2)
  - Diarrhoea [Not Recovered/Not Resolved]
  - Hypovolaemic shock [Fatal]

NARRATIVE: CASE EVENT DATE: 20180528
